FAERS Safety Report 11740816 (Version 2)
Quarter: 2015Q4

REPORT INFORMATION
  Report Type: Spontaneous
  Country: US (occurrence: US)
  Receive Date: 20151114
  Receipt Date: 20151223
  Transmission Date: 20160304
  Serious: Yes (Death)
  Sender: FDA-Public Use
  Company Number: US-TEVA-608952USA

PATIENT
  Age: 15 Year
  Sex: Male

DRUGS (1)
  1. PROVIGIL [Suspect]
     Active Substance: MODAFINIL
     Indication: NARCOLEPSY

REACTIONS (1)
  - Completed suicide [Fatal]
